FAERS Safety Report 7631229-7 (Version None)
Quarter: 2011Q3

REPORT INFORMATION
  Report Type: 
  Country: None (occurrence: None)
  Receive Date: 20110725
  Receipt Date: 20110715
  Transmission Date: 20111222
  Serious: Yes (Other)
  Sender: FDA-Public Use
  Company Number: CN-JNJFOC-20110708029

PATIENT
  Age: 30 Year
  Sex: Female

DRUGS (2)
  1. SPORANOX [Suspect]
     Route: 048
     Dates: start: 20110712, end: 20110712
  2. SPORANOX [Suspect]
     Indication: FUNGAL INFECTION
     Route: 048
     Dates: start: 20110713, end: 20110714

REACTIONS (2)
  - CHEST DISCOMFORT [None]
  - DYSPNOEA [None]
